FAERS Safety Report 11096637 (Version 1)
Quarter: 2015Q2

REPORT INFORMATION
  Report Type: Spontaneous
  Country: US (occurrence: US)
  Receive Date: 20150507
  Receipt Date: 20150507
  Transmission Date: 20150821
  Serious: No
  Sender: FDA-Public Use
  Company Number: US-CELGENEUS-USA-2015040054

PATIENT
  Sex: Male

DRUGS (6)
  1. REVLIMID [Suspect]
     Active Substance: LENALIDOMIDE
     Route: 048
     Dates: start: 201503, end: 2015
  2. REVLIMID [Suspect]
     Active Substance: LENALIDOMIDE
     Route: 048
     Dates: start: 201110, end: 2011
  3. REVLIMID [Suspect]
     Active Substance: LENALIDOMIDE
     Route: 048
     Dates: start: 201503
  4. REVLIMID [Suspect]
     Active Substance: LENALIDOMIDE
     Indication: PLASMA CELL MYELOMA
     Route: 048
     Dates: start: 201009, end: 2011
  5. REVLIMID [Suspect]
     Active Substance: LENALIDOMIDE
     Route: 048
     Dates: start: 201201, end: 2012
  6. REVLIMID [Suspect]
     Active Substance: LENALIDOMIDE
     Route: 048
     Dates: start: 201201, end: 2012

REACTIONS (2)
  - Drug intolerance [Unknown]
  - Medication error [Unknown]
